FAERS Safety Report 9121380 (Version 3)
Quarter: 2014Q3

REPORT INFORMATION
  Report Type: Spontaneous
  Country: US (occurrence: US)
  Receive Date: 20130225
  Receipt Date: 20140725
  Transmission Date: 20150326
  Serious: Yes (Hospitalization, Other)
  Sender: FDA-Public Use
  Company Number: US-009507513-2010SP028268

PATIENT
  Sex: Female
  Weight: 68.4 kg

DRUGS (2)
  1. TYLENOL [Concomitant]
     Active Substance: ACETAMINOPHEN
     Indication: DYSMENORRHOEA
     Dosage: 200 MG, QM
  2. NUVARING [Suspect]
     Active Substance: ETHINYL ESTRADIOL\ETONOGESTREL
     Indication: CONTRACEPTION
     Dosage: UNK
     Route: 067
     Dates: start: 20070423, end: 200806

REACTIONS (11)
  - Maternal exposure before pregnancy [Unknown]
  - Radius fracture [Unknown]
  - Nausea [Unknown]
  - Intracranial venous sinus thrombosis [Not Recovered/Not Resolved]
  - Migraine without aura [Unknown]
  - Ovarian cyst [Unknown]
  - Lip repair [Unknown]
  - Benign intracranial hypertension [Unknown]
  - Headache [Unknown]
  - Visual impairment [Unknown]
  - Occipital neuralgia [Unknown]

NARRATIVE: CASE EVENT DATE: 20070929
